FAERS Safety Report 5342565-1 (Version None)
Quarter: 2007Q2

REPORT INFORMATION
  Report Type: 
  Country: None (occurrence: None)
  Receive Date: 20070416
  Receipt Date: 20070112
  Transmission Date: 20071010
  Serious: No
  Sender: FDA-Public Use
  Company Number: 2007SP000141

PATIENT
  Age: 73 Year
  Sex: Female
  Weight: 61.2356 kg

DRUGS (8)
  1. LUNESTA [Suspect]
     Indication: INSOMNIA
     Dosage: SEE IMAGE
     Route: 048
     Dates: start: 20060101, end: 20060101
  2. PINDOLOL [Concomitant]
  3. AMLODIPINE [Concomitant]
  4. ATACAND [Concomitant]
  5. LOPID [Concomitant]
  6. GLUCOSAMINE [Concomitant]
  7. CALCIUM CHLORIDE [Concomitant]
  8. VITAMIN CAP [Concomitant]

REACTIONS (6)
  - ABDOMINAL PAIN UPPER [None]
  - DIARRHOEA [None]
  - DYSGEUSIA [None]
  - MUSCLE SPASMS [None]
  - NAUSEA [None]
  - STOMACH DISCOMFORT [None]
